FAERS Safety Report 14927465 (Version 4)
Quarter: 2019Q1

REPORT INFORMATION
  Report Type: Spontaneous
  Country: US (occurrence: US)
  Receive Date: 20180523
  Receipt Date: 20190329
  Transmission Date: 20190417
  Serious: No
  Sender: FDA-Public Use
  Company Number: US-PFIZER INC-2018210510

PATIENT
  Age: 59 Year
  Sex: Female

DRUGS (2)
  1. ALPRAZOLAM. [Suspect]
     Active Substance: ALPRAZOLAM
     Dosage: 2.5 DF, 1X/DAY (2 AND HALF TABLETS AT NIGHT)
  2. ALPRAZOLAM. [Suspect]
     Active Substance: ALPRAZOLAM
     Dosage: 2.5 MG, UNK (30 DAY SUPPLY)

REACTIONS (3)
  - Product complaint [Unknown]
  - Poor quality product administered [Unknown]
  - Drug ineffective [Unknown]
